FAERS Safety Report 5688669-5 (Version None)
Quarter: 2008Q1

REPORT INFORMATION
  Report Type: 
  Country: None (occurrence: None)
  Receive Date: 20080331
  Receipt Date: 20080318
  Transmission Date: 20080703
  Serious: Yes (Hospitalization)
  Sender: FDA-Public Use
  Company Number: JP-NOVOPROD-273450

PATIENT
  Age: 62 Year
  Sex: Female

DRUGS (1)
  1. PENFILL 30R CHU [Suspect]
     Indication: LATENT AUTOIMMUNE DIABETES IN ADULTS

REACTIONS (3)
  - ADRENAL NEOPLASM [None]
  - BLOOD GLUCOSE FLUCTUATION [None]
  - HYPOGLYCAEMIA [None]
